FAERS Safety Report 18459076 (Version 1)
Quarter: 2020Q4

REPORT INFORMATION
  Report Type: Spontaneous
  Country: US (occurrence: US)
  Receive Date: 20201103
  Receipt Date: 20201103
  Transmission Date: 20210114
  Serious: Yes (Hospitalization, Other)
  Sender: FDA-Public Use
  Company Number: US-ASTRAZENECA-2020SF42509

PATIENT
  Sex: Female
  Weight: 78.5 kg

DRUGS (3)
  1. FARXIGA [Suspect]
     Active Substance: DAPAGLIFLOZIN PROPANEDIOL
     Indication: DIABETES MELLITUS
     Route: 048
     Dates: start: 20201019
  2. LISINOPRIL. [Suspect]
     Active Substance: LISINOPRIL
     Route: 048
  3. MAGNESIUM [Concomitant]
     Active Substance: MAGNESIUM

REACTIONS (16)
  - Asthenia [Not Recovered/Not Resolved]
  - Diabetes mellitus [Unknown]
  - Thirst [Unknown]
  - Lethargy [Not Recovered/Not Resolved]
  - Vomiting [Unknown]
  - Hypoglycaemia [Unknown]
  - Blood glucose increased [Unknown]
  - Fatigue [Unknown]
  - Abdominal discomfort [Not Recovered/Not Resolved]
  - Hypertension [Unknown]
  - Magnesium deficiency [Unknown]
  - Pancreatitis [Unknown]
  - Vascular occlusion [Unknown]
  - Confusional state [Not Recovered/Not Resolved]
  - Cardiac disorder [Unknown]
  - Nausea [Unknown]
